FAERS Safety Report 8171355-X (Version None)
Quarter: 2012Q1

REPORT INFORMATION
  Report Type: 
  Country: None (occurrence: None)
  Receive Date: 20120228
  Receipt Date: 20120217
  Transmission Date: 20120608
  Serious: Yes (Death)
  Sender: FDA-Public Use
  Company Number: JP-MEDIMMUNE-MEDI-0014741

PATIENT
  Sex: Female
  Weight: 2.69 kg

DRUGS (8)
  1. ERYTHROMYCIN STEARATE [Concomitant]
     Route: 048
     Dates: start: 20101104, end: 20101124
  2. CEFDITOREN PIVOXIL [Concomitant]
     Route: 048
     Dates: start: 20100915
  3. SYNAGIS [Suspect]
     Route: 030
     Dates: start: 20100908, end: 20101202
  4. ANTIBIOTIC-RESISTANT LACTIC ACID BACTERIAE [Concomitant]
     Route: 048
     Dates: start: 20101106, end: 20101116
  5. PRANLUKAST HYDRATE [Concomitant]
     Route: 048
     Dates: start: 20101104, end: 20101117
  6. PROCATEROL HCL [Concomitant]
     Route: 048
     Dates: start: 20101106
  7. L-CARBOCISTEINE [Concomitant]
     Route: 048
     Dates: start: 20100908, end: 20101103
  8. AMBROXOL HYDROCHLORIDE [Concomitant]
     Dates: start: 20100908, end: 20101103

REACTIONS (2)
  - PYREXIA [None]
  - DEATH [None]
